FAERS Safety Report 4777019-4 (Version None)
Quarter: 2005Q3

REPORT INFORMATION
  Report Type: 
  Country: None (occurrence: None)
  Receive Date: 20050914
  Receipt Date: 20040721
  Transmission Date: 20060218
  Serious: Yes (Hospitalization)
  Sender: FDA-Public Use
  Company Number: 163-20785-04070568

PATIENT
  Age: 72 Year
  Sex: Male

DRUGS (12)
  1. THALOMID [Suspect]
     Indication: MULTIPLE MYELOMA
     Dosage: 50 MG, DAILY FOR 7 DAYS EVERY OTHER WEEK, ORAL
     Route: 048
     Dates: start: 20020218, end: 20040301
  2. BIAXIN [Concomitant]
  3. OXYCONTIN [Concomitant]
  4. ACYCLOVIR [Concomitant]
  5. LASIX [Concomitant]
  6. POTASSIUM (POTASSIUM) [Concomitant]
  7. TAGAMET [Concomitant]
  8. PREDNISONE [Concomitant]
  9. AREDIA [Concomitant]
  10. MAGNESIUM (MAGNESIUM) [Concomitant]
  11. ALBUTEROL (SALBUTAMOL) (INHALANT) [Concomitant]
  12. DIGOXIN [Concomitant]

REACTIONS (3)
  - OEDEMA PERIPHERAL [None]
  - PNEUMONIA [None]
  - SYNCOPE [None]
